FAERS Safety Report 4283935-2 (Version None)
Quarter: 2004Q1

REPORT INFORMATION
  Report Type: 
  Country: None (occurrence: None)
  Receive Date: 20040115
  Receipt Date: 20030609
  Transmission Date: 20041129
  Serious: Yes (Death)
  Sender: FDA-Public Use
  Company Number: NSADSS2003024551

PATIENT
  Age: 86 Year
  Sex: Male

DRUGS (1)
  1. DOXIL [Suspect]
     Indication: MULTIPLE MYELOMA
     Dosage: INTRAVENOUS DRIP
     Route: 041

REACTIONS (1)
  - CONDITION AGGRAVATED [None]
